FAERS Safety Report 4863366-4 (Version None)
Quarter: 2005Q4

REPORT INFORMATION
  Report Type: 
  Country: None (occurrence: None)
  Receive Date: 20051222
  Receipt Date: 20041101
  Transmission Date: 20060501
  Serious: No
  Sender: FDA-Public Use
  Company Number: US-GLAXOSMITHKLINE-A0532009A

PATIENT
  Age: 82 Year
  Sex: Female

DRUGS (12)
  1. FLONASE [Suspect]
     Dosage: 2SPR PER DAY
     Route: 045
  2. ALLEGRA [Concomitant]
  3. NEXIUM [Concomitant]
  4. TOPROL-XL [Concomitant]
  5. ASPIRIN [Concomitant]
  6. LOTREL [Concomitant]
  7. VITAMINS [Concomitant]
  8. GERITOL [Concomitant]
  9. TRAMADOL HCL [Concomitant]
  10. MAXAIR [Concomitant]
  11. CHOLESTYRAMINE [Concomitant]
  12. LIPIDERM [Concomitant]

REACTIONS (3)
  - DRUG INEFFECTIVE [None]
  - RHINORRHOEA [None]
  - SNEEZING [None]
